FAERS Safety Report 6202579-6 (Version None)
Quarter: 2009Q2

REPORT INFORMATION
  Report Type: 
  Country: None (occurrence: None)
  Receive Date: 20090521
  Receipt Date: 20090521
  Transmission Date: 20091009
  Serious: No
  Sender: FDA-Public Use
  Company Number: None

PATIENT
  Age: 21 Year
  Sex: Male
  Weight: 104.3273 kg

DRUGS (1)
  1. CHANTIX [Suspect]
     Indication: SMOKING CESSATION THERAPY
     Dosage: 1/2 TABLET 1 X DAY, FOR 3 DAY PO
     Route: 048
     Dates: start: 20090516, end: 20090516

REACTIONS (4)
  - ABDOMINAL PAIN UPPER [None]
  - ERYTHEMA [None]
  - FEELING HOT [None]
  - NAUSEA [None]
